FAERS Safety Report 9209767 (Version 1)
Quarter: 2013Q1

REPORT INFORMATION
  Report Type: Spontaneous
  Country: US (occurrence: None)
  Receive Date: 20120820
  Receipt Date: 20120820
  Transmission Date: 20140127
  Serious: No
  Sender: FDA-Public Use
  Company Number: 1000030148

PATIENT
  Age: 73 Year
  Sex: Female

DRUGS (7)
  1. VIIBRYD (VILAZODONE) (10 MILLIGRAM, TABLETS) [Suspect]
     Indication: DEPRESSION
     Route: 048
     Dates: start: 201203
  2. VIIBRYD (VILAZODONE) (40 MILLIGRAM, TABLETS) [Suspect]
     Route: 048
     Dates: end: 201204
  3. KLONOPIN [Concomitant]
  4. SYNTHROID (LEVOTHYROXINE SODIUM) (LEVOTHYROXINE SODIUM) [Concomitant]
  5. LIPITOR (ATORVASTATIN CALCIUM) (ATORVASTATIN CALCIUM) [Concomitant]
  6. VESICARE (SOLIFENACIN SUCCINATE) (SOLIFENACIN SUCCINATE) [Concomitant]
  7. DOXEPIN (DOXEPIN) (DOXEPIN) [Concomitant]

REACTIONS (1)
  - Diarrhoea [None]
